FAERS Safety Report 5381119-8 (Version None)
Quarter: 2007Q3

REPORT INFORMATION
  Report Type: 
  Country: None (occurrence: None)
  Receive Date: 20070706
  Receipt Date: 20070627
  Transmission Date: 20080115
  Serious: Yes (Other)
  Sender: FDA-Public Use
  Company Number: DE-SHR-DE-2007-022268

PATIENT
  Age: 57 Year
  Sex: Female

DRUGS (1)
  1. MAGNEVIST [Suspect]
     Dosage: UNK, 1 DOSE
     Route: 037
     Dates: start: 20070606, end: 20070606

REACTIONS (7)
  - APHASIA [None]
  - DYSARTHRIA [None]
  - HEMIPARESIS [None]
  - INCORRECT ROUTE OF DRUG ADMINISTRATION [None]
  - MONOPARESIS [None]
  - PARAESTHESIA [None]
  - SUBARACHNOID HAEMORRHAGE [None]
